FAERS Safety Report 9024502 (Version 3)
Quarter: 2013Q1

REPORT INFORMATION
  Report Type: Spontaneous
  Country: FR (occurrence: None)
  Receive Date: 20130104
  Receipt Date: 20130305
  Transmission Date: 20140127
  Serious: Yes (Hospitalization)
  Sender: FDA-Public Use
  Company Number: 2012-8261

PATIENT
  Age: 35 Year
  Sex: Female

DRUGS (2)
  1. DYSPORT [Suspect]
     Indication: MUSCLE SPASTICITY
     Dosage: 1500 UNITS, CYCLE(S))
     Route: 030
     Dates: start: 201001
  2. BACLOFEN (BACLOFEN) [Concomitant]

REACTIONS (16)
  - Paresis [None]
  - Dyspnoea [None]
  - Dysphagia [None]
  - Muscular weakness [None]
  - Respiratory disorder [None]
  - Oropharyngeal discomfort [None]
  - Muscular weakness [None]
  - Accommodation disorder [None]
  - Dry eye [None]
  - Somnolence [None]
  - Dry mouth [None]
  - Asthenia [None]
  - Sinoatrial block [None]
  - Syringomyelia [None]
  - Overdose [None]
  - Dysphagia [None]
